FAERS Safety Report 5162188-7 (Version None)
Quarter: 2006Q4

REPORT INFORMATION
  Report Type: 
  Country: None (occurrence: None)
  Receive Date: 20061121
  Receipt Date: 20051115
  Transmission Date: 20070319
  Serious: Yes (Hospitalization)
  Sender: FDA-Public Use
  Company Number: 000#8#2005-00787

PATIENT
  Age: 80 Year
  Sex: Female

DRUGS (3)
  1. GLYCERYL TRINITRATE, (GLYCERYL TRINITRATE) [Suspect]
     Indication: CHEST PAIN
     Dosage: .6 MG SUBLINGUAL
     Route: 060
  2. NIFEDIPINE [Suspect]
     Indication: CHEST PAIN
     Dosage: 5 MG ORAL
     Route: 048
  3. NIFEDIPINE [Suspect]
     Indication: HYPERTENSION
     Dosage: 5 MG ORAL
     Route: 048

REACTIONS (13)
  - BLOOD PRESSURE DECREASED [None]
  - FAECAL INCONTINENCE [None]
  - HYPOREFLEXIA [None]
  - ISCHAEMIC STROKE [None]
  - MUSCLE SPASTICITY [None]
  - MUSCULAR WEAKNESS [None]
  - NUCLEAR MAGNETIC RESONANCE IMAGING ABNORMAL [None]
  - PAIN [None]
  - PARAESTHESIA [None]
  - SENSORY LOSS [None]
  - SPINAL CORD INFARCTION [None]
  - SPINAL CORD ISCHAEMIA [None]
  - URINARY RETENTION [None]
